FAERS Safety Report 13056294 (Version 1)
Quarter: 2016Q4

REPORT INFORMATION
  Report Type: Report from Study
  Country: IE (occurrence: IE)
  Receive Date: 20161222
  Receipt Date: 20161222
  Transmission Date: 20170207
  Serious: Yes (Hospitalization)
  Sender: FDA-Public Use
  Company Number: IE-BEH-2016075298

PATIENT
  Sex: Male

DRUGS (12)
  1. PHYLLOCONTIN [Concomitant]
     Active Substance: AMINOPHYLLINE
  2. OXYGEN. [Concomitant]
     Active Substance: OXYGEN
  3. ZEMAIRA [Suspect]
     Active Substance: .ALPHA.1-PROTEINASE INHIBITOR HUMAN
     Indication: ALPHA-1 ANTI-TRYPSIN DEFICIENCY
     Dosage: 60 MG, UNK
     Route: 042
     Dates: start: 20161010
  4. SERETIDE [Concomitant]
     Active Substance: FLUTICASONE PROPIONATE\SALMETEROL XINAFOATE
  5. FUROSEMIDE. [Concomitant]
     Active Substance: FUROSEMIDE
  6. PARACETAMOL [Concomitant]
     Active Substance: ACETAMINOPHEN
  7. PANTIUM                            /01116001/ [Concomitant]
  8. SALINE                             /00075401/ [Concomitant]
     Active Substance: SODIUM CHLORIDE
  9. FLUIMUCIL [Concomitant]
     Active Substance: ACETYLCYSTEINE
  10. VENTOLIN NEBULAS [Concomitant]
  11. SPIRIVA [Concomitant]
     Active Substance: TIOTROPIUM BROMIDE MONOHYDRATE
  12. AVODART [Concomitant]
     Active Substance: DUTASTERIDE

REACTIONS (1)
  - Pneumonia [Recovered/Resolved]
